FAERS Safety Report 18044253 (Version 2)
Quarter: 2020Q4

REPORT INFORMATION
  Report Type: Spontaneous
  Country: JP (occurrence: JP)
  Receive Date: 20200720
  Receipt Date: 20201022
  Transmission Date: 20210113
  Serious: Yes (Hospitalization)
  Sender: FDA-Public Use
  Company Number: JP-ASTRAZENECA-2020SE89084

PATIENT
  Age: 85 Year
  Sex: Female

DRUGS (2)
  1. TAGRISSO [Suspect]
     Active Substance: OSIMERTINIB
     Indication: NON-SMALL CELL LUNG CANCER
     Route: 048
     Dates: start: 201909, end: 201909
  2. TAGRISSO [Suspect]
     Active Substance: OSIMERTINIB
     Indication: NON-SMALL CELL LUNG CANCER
     Route: 048
     Dates: start: 201912

REACTIONS (16)
  - Physical deconditioning [Recovered/Resolved]
  - Cutaneous symptom [Unknown]
  - Yellow skin [Unknown]
  - Cardiac disorder [Unknown]
  - Off label use [Not Recovered/Not Resolved]
  - Decreased appetite [Recovered/Resolved]
  - Haemorrhage subcutaneous [Unknown]
  - Cardiac dysfunction [Recovered/Resolved]
  - Stomatitis [Recovered/Resolved]
  - Dry skin [Recovered/Resolved]
  - Liver disorder [Unknown]
  - Hepatic function abnormal [Recovered/Resolved]
  - Fatigue [Unknown]
  - Skin atrophy [Unknown]
  - Nasopharyngitis [Recovered/Resolved]
  - Palpitations [Recovered/Resolved]

NARRATIVE: CASE EVENT DATE: 2019
